FAERS Safety Report 6690236-1 (Version None)
Quarter: 2010Q2

REPORT INFORMATION
  Report Type: 
  Country: None (occurrence: None)
  Receive Date: 20100421
  Receipt Date: 20100419
  Transmission Date: 20101027
  Serious: Yes (Congenital Anomaly)
  Sender: FDA-Public Use
  Company Number: IE-ROCHE-688084

PATIENT
  Sex: Female
  Weight: 2.2 kg

DRUGS (15)
  1. COPEGUS [Suspect]
     Route: 064
     Dates: start: 20040119, end: 20041221
  2. PEGASYS [Suspect]
     Route: 064
     Dates: start: 20040119, end: 20041221
  3. EFFEXOR [Concomitant]
  4. ZOMIG [Concomitant]
     Dosage: FORMULATION: ORODISP TABLET
  5. HALF-INDERAL LA [Concomitant]
     Dosage: DRUG NAME: HALF-INDERAL
  6. MOVICOL [Concomitant]
     Dosage: DRUG NAME:MOVICAL, FORM: SACHETS
  7. PARACETAMOL [Concomitant]
     Dosage: DOSING FREQ: PRN
  8. HYDROCORTISONE CREAM [Concomitant]
     Dosage: TAKEN DURING HCV TREATMENT
  9. DICLOFENAC SODIUM [Concomitant]
  10. ENSURE [Concomitant]
     Dosage: DRUG NAME: ENSURE DRINKS
  11. CALOGEN [Concomitant]
  12. FOLIC ACID [Concomitant]
     Dosage: TAKEN FOR LAST 10 DAYS OF HCV TREATMENT.
  13. NEO-CYTAMEN [Concomitant]
     Dosage: GIVEN 1000 MCGS X 5, TAKEN POST HCV TREATMENT
     Dates: start: 20050101
  14. ZINERYT [Concomitant]
     Dosage: FREQUENCY: PRN
     Dates: start: 20060101
  15. METHADONE HCL [Concomitant]
     Dates: end: 20050101

REACTIONS (3)
  - CONGENITAL ANOMALY [None]
  - CONGENITAL INTESTINAL MALFORMATION [None]
  - INTESTINAL ATRESIA [None]
